FAERS Safety Report 6739912-2 (Version None)
Quarter: 2010Q2

REPORT INFORMATION
  Report Type: 
  Country: None (occurrence: None)
  Receive Date: 20100525
  Receipt Date: 20100517
  Transmission Date: 20101027
  Serious: Yes (Other)
  Sender: FDA-Public Use
  Company Number: US-PFIZER INC-2010062493

PATIENT
  Sex: Female
  Weight: 50.794 kg

DRUGS (3)
  1. LIPITOR [Suspect]
     Indication: BLOOD CHOLESTEROL INCREASED
     Dosage: 80 MG, UNK
     Route: 048
     Dates: end: 20100401
  2. DEPAKOTE [Concomitant]
     Indication: PETIT MAL EPILEPSY
     Dosage: UNK
  3. ATENOLOL [Concomitant]
     Dosage: UNK

REACTIONS (4)
  - BONE PAIN [None]
  - HYPOKINESIA [None]
  - MYALGIA [None]
  - ROTATOR CUFF SYNDROME [None]
